FAERS Safety Report 6927765-9 (Version None)
Quarter: 2010Q3

REPORT INFORMATION
  Report Type: 
  Country: None (occurrence: None)
  Receive Date: 20100817
  Receipt Date: 20100809
  Transmission Date: 20110219
  Serious: Yes (Life-Threatening, Hospitalization, Other)
  Sender: FDA-Public Use
  Company Number: GB-AMGEN-QUU425504

PATIENT
  Age: 19 Year
  Sex: Male

DRUGS (8)
  1. NEULASTA [Suspect]
     Indication: CHEMOTHERAPY
     Route: 058
     Dates: start: 20100501
  2. ADRIAMYCIN PFS [Concomitant]
     Route: 042
     Dates: start: 20100430, end: 20100628
  3. BLEOMYCIN [Concomitant]
     Route: 042
     Dates: start: 20100430, end: 20100628
  4. VINBLASTINE SULFATE [Concomitant]
     Route: 042
     Dates: start: 20100430, end: 20100628
  5. DACARBAZINE [Concomitant]
     Route: 042
     Dates: start: 20100430, end: 20100628
  6. ONDANSETRON [Concomitant]
     Route: 048
     Dates: start: 20100430, end: 20100702
  7. ALLOPURINOL [Concomitant]
     Route: 048
     Dates: start: 20100430, end: 20100704
  8. NULYTELY [Concomitant]
     Route: 048
     Dates: start: 20100430

REACTIONS (4)
  - CONDITION AGGRAVATED [None]
  - MYELOID MATURATION ARREST [None]
  - NEUTROPENIA [None]
  - NEUTROPENIC SEPSIS [None]
